FAERS Safety Report 5071291-1 (Version None)
Quarter: 2006Q3

REPORT INFORMATION
  Report Type: 
  Country: None (occurrence: None)
  Receive Date: 20060804
  Receipt Date: 20060421
  Transmission Date: 20061208
  Serious: Yes (Hospitalization)
  Sender: FDA-Public Use
  Company Number: US-ROCHE-445516

PATIENT
  Age: 46 Year
  Sex: Female

DRUGS (4)
  1. PEGASYS [Suspect]
     Dosage: ROUTE REPORTED AS INJECTABLE. SUSPENDED FOR ONE WEEK DUE TO FLU.
     Route: 050
     Dates: start: 20051015, end: 20060315
  2. PEGASYS [Suspect]
     Route: 050
     Dates: start: 20060405
  3. COPEGUS [Suspect]
     Dosage: SUSPENDED FOR ONE WEEK DUE TO FLU.
     Route: 048
     Dates: start: 20051015, end: 20060315
  4. COPEGUS [Suspect]
     Route: 048
     Dates: start: 20060405

REACTIONS (15)
  - ALOPECIA [None]
  - ANXIETY [None]
  - ATRIAL FIBRILLATION [None]
  - CHEST DISCOMFORT [None]
  - CHEST PAIN [None]
  - DEPRESSION [None]
  - DIZZINESS [None]
  - DYSPNOEA [None]
  - DYSSTASIA [None]
  - FATIGUE [None]
  - HEART RATE INCREASED [None]
  - HYPOTRICHOSIS [None]
  - INFLUENZA [None]
  - PALPITATIONS [None]
  - RASH [None]
